FAERS Safety Report 23543363 (Version 2)
Quarter: 2024Q1

REPORT INFORMATION
  Report Type: Spontaneous
  Country: CA (occurrence: None)
  Receive Date: 20240220
  Receipt Date: 20240305
  Transmission Date: 20240410
  Serious: Yes (Other)
  Sender: FDA-Public Use
  Company Number: CA-PFIZER INC-202400039747

PATIENT
  Age: 52 Year
  Sex: Female
  Weight: 70.748 kg

DRUGS (2)
  1. METHOTREXATE [Suspect]
     Active Substance: METHOTREXATE
     Indication: Crohn^s disease
  2. METHOTREXATE [Suspect]
     Active Substance: METHOTREXATE
     Indication: Anorectal disorder
     Dates: start: 202309

REACTIONS (8)
  - Crohn^s disease [Unknown]
  - Haematochezia [Unknown]
  - Abscess [Unknown]
  - Drug ineffective for unapproved indication [Unknown]
  - Product use in unapproved indication [Unknown]
  - Treatment failure [Unknown]
  - Arthralgia [Unknown]
  - Dry eye [Unknown]
